FAERS Safety Report 18733803 (Version 1)
Quarter: 2021Q1

REPORT INFORMATION
  Report Type: Spontaneous
  Country: US (occurrence: US)
  Receive Date: 20210113
  Receipt Date: 20210113
  Transmission Date: 20210419
  Serious: Yes (Other)
  Sender: FDA-Public Use
  Company Number: US-ALKEM LABORATORIES LIMITED-US-ALKEM-2020-07738

PATIENT
  Age: 64 Year
  Sex: Male

DRUGS (1)
  1. DIMETHYLFUMARATE [Suspect]
     Active Substance: DIMETHYL FUMARATE
     Indication: MULTIPLE SCLEROSIS
     Dosage: 240 MILLIGRAM, BID
     Route: 065
     Dates: start: 201305

REACTIONS (3)
  - Lymphopenia [Not Recovered/Not Resolved]
  - Off label use [Unknown]
  - Progressive multifocal leukoencephalopathy [Unknown]
